FAERS Safety Report 9518305 (Version 1)
Quarter: 2013Q3

REPORT INFORMATION
  Report Type: Spontaneous
  Country: US (occurrence: None)
  Receive Date: 20130910
  Receipt Date: 20130910
  Transmission Date: 20140515
  Serious: Yes (Life-Threatening)
  Sender: FDA-Public Use
  Company Number: None

PATIENT
  Age: 41 Year
  Sex: Female
  Weight: 63.5 kg

DRUGS (3)
  1. CELEXA [Suspect]
     Indication: ANXIETY
     Dosage: ONLY ONE DOSE TAKEN
     Route: 048
     Dates: start: 200807
  2. DAILY WOMEN^S VITAMIN [Concomitant]
  3. FOLIC ACID [Concomitant]

REACTIONS (16)
  - Swollen tongue [None]
  - Psychomotor hyperactivity [None]
  - Vertigo [None]
  - Nausea [None]
  - Oral pain [None]
  - Dry mouth [None]
  - Pruritus [None]
  - Myalgia [None]
  - Arthralgia [None]
  - Headache [None]
  - Coordination abnormal [None]
  - Muscle disorder [None]
  - Dyskinesia [None]
  - Thinking abnormal [None]
  - Rash [None]
  - Tongue coated [None]
